FAERS Safety Report 5927290-8 (Version None)
Quarter: 2008Q4

REPORT INFORMATION
  Report Type: 
  Country: None (occurrence: None)
  Receive Date: 20081017
  Receipt Date: 20081010
  Transmission Date: 20090506
  Serious: Yes (Death)
  Sender: FDA-Public Use
  Company Number: 2008JP004867

PATIENT
  Age: 30 Year
  Sex: Female
  Weight: 57 kg

DRUGS (20)
  1. TACROLIMUS [Suspect]
     Indication: LUPUS NEPHRITIS
     Dosage: 2 MG, 3 MG, UNKNOWN/D, ORAL
     Route: 048
     Dates: start: 20080326, end: 20080408
  2. TACROLIMUS [Suspect]
     Indication: LUPUS NEPHRITIS
     Dosage: 2 MG, 3 MG, UNKNOWN/D, ORAL
     Route: 048
     Dates: start: 20080409, end: 20080615
  3. PREDNISONE [Suspect]
     Indication: LUPUS NEPHRITIS
     Dosage: 60 MG, 55 MG, 50 MG, 45 MG, 40 MG, 37.5 MG, UNKNOWN/D, ORAL
     Route: 048
     Dates: end: 20080405
  4. PREDNISONE [Suspect]
     Indication: LUPUS NEPHRITIS
     Dosage: 60 MG, 55 MG, 50 MG, 45 MG, 40 MG, 37.5 MG, UNKNOWN/D, ORAL
     Route: 048
     Dates: start: 20080424, end: 20080507
  5. PREDNISONE [Suspect]
     Indication: LUPUS NEPHRITIS
     Dosage: 60 MG, 55 MG, 50 MG, 45 MG, 40 MG, 37.5 MG, UNKNOWN/D, ORAL
     Route: 048
     Dates: start: 20080508, end: 20080521
  6. PREDNISONE [Suspect]
     Indication: LUPUS NEPHRITIS
     Dosage: 60 MG, 55 MG, 50 MG, 45 MG, 40 MG, 37.5 MG, UNKNOWN/D, ORAL
     Route: 048
     Dates: start: 20080522, end: 20080604
  7. PREDNISONE [Suspect]
     Indication: LUPUS NEPHRITIS
     Dosage: 60 MG, 55 MG, 50 MG, 45 MG, 40 MG, 37.5 MG, UNKNOWN/D, ORAL
     Route: 048
     Dates: start: 20080605, end: 20080615
  8. DEPAKENE [Concomitant]
  9. TENORMIN [Concomitant]
  10. LANSOPRAZOLE [Concomitant]
  11. INCREMIN SYRUP [Concomitant]
  12. LENDORM [Concomitant]
  13. MAGNESIUM OXIDE (MAGNESIUM OXIDE) [Concomitant]
  14. PRAVASTATIN [Concomitant]
  15. LAC B (LACTOBACILLUS BIFIDUS, LYOPHILIZED) [Concomitant]
  16. GLUCOBAY [Concomitant]
  17. ZETIA [Concomitant]
  18. OLMETEC (OLMESARTAN MEDOXOMIL) [Concomitant]
  19. BUP-4 (PROPIVERINE HYDROCHLORIDE) [Concomitant]
  20. LIPITOR [Concomitant]

REACTIONS (1)
  - PNEUMOCYSTIS JIROVECI PNEUMONIA [None]
